FAERS Safety Report 12690860 (Version 1)
Quarter: 2016Q3

REPORT INFORMATION
  Report Type: Spontaneous
  Country: DE (occurrence: DE)
  Receive Date: 20160826
  Receipt Date: 20160826
  Transmission Date: 20161109
  Serious: Yes (Death, Hospitalization)
  Sender: FDA-Public Use
  Company Number: DE-OTSUKA-US-2015-10621

PATIENT

DRUGS (1)
  1. DACOGEN [Suspect]
     Active Substance: DECITABINE
     Indication: ACUTE MYELOID LEUKAEMIA
     Dosage: 34 MG, IN 1 DAY
     Route: 042
     Dates: start: 20140119, end: 20140123

REACTIONS (1)
  - Enterococcal sepsis [Fatal]

NARRATIVE: CASE EVENT DATE: 20150124
